FAERS Safety Report 7204574-7 (Version None)
Quarter: 2010Q4

REPORT INFORMATION
  Report Type: 
  Country: None (occurrence: None)
  Receive Date: 20101230
  Receipt Date: 20101228
  Transmission Date: 20110411
  Serious: Yes (Disabling, Other)
  Sender: FDA-Public Use
  Company Number: PHHY2008JP20361

PATIENT
  Sex: Female

DRUGS (17)
  1. LAMISIL [Suspect]
     Indication: ONYCHOMYCOSIS
     Dosage: 125 MG DAILY
     Route: 048
     Dates: start: 20080509, end: 20080808
  2. METHYCOBAL [Concomitant]
     Indication: DYSGEUSIA
     Dosage: 1500 UG
     Route: 048
     Dates: start: 20081001
  3. ALINAMIN [Concomitant]
     Indication: DYSGEUSIA
     Dosage: 3 DF
     Route: 048
     Dates: start: 20081001
  4. AZUNOL [Concomitant]
     Indication: ECZEMA
     Dosage: UNK
     Dates: start: 20080725, end: 20080806
  5. NIZORAL [Concomitant]
     Indication: TINEA INFECTION
     Dosage: UNK
  6. METHADERM [Concomitant]
     Indication: ECZEMA
     Dosage: UNK
     Dates: start: 20080509, end: 20080523
  7. SERENAL [Concomitant]
     Indication: INSOMNIA
     Dosage: UNK
     Route: 048
     Dates: start: 20080618, end: 20080709
  8. RINDERON -V [Concomitant]
     Indication: ECZEMA
     Dosage: UNK
     Dates: start: 20080725, end: 20080806
  9. PROMAC [Concomitant]
     Indication: DYSGEUSIA
     Dosage: 150 MG
     Route: 048
     Dates: start: 20080808
  10. PROMAC [Concomitant]
     Dosage: 225 MG
     Route: 048
  11. AZUNOL [Concomitant]
     Indication: DYSGEUSIA
     Dosage: UNK
     Dates: start: 20080808
  12. GASTER D [Concomitant]
     Indication: GASTRITIS
     Dosage: 20 MG
     Route: 048
     Dates: start: 20080808, end: 20081001
  13. BETAMETHASONE [Concomitant]
     Dosage: 3 MG
     Route: 048
  14. BETAMETHASONE [Concomitant]
     Dosage: 2 MG
     Route: 048
  15. BETAMETHASONE [Concomitant]
     Dosage: 1 MG
     Route: 048
  16. BETAMETHASONE [Concomitant]
     Dosage: 0.5 MG
     Route: 048
  17. PARIET [Concomitant]
     Dosage: 10  MG
     Route: 048
     Dates: start: 20081001

REACTIONS (4)
  - APTYALISM [None]
  - BUCCAL MUCOSAL ROUGHENING [None]
  - DYSGEUSIA [None]
  - ORAL DISCOMFORT [None]
